FAERS Safety Report 9870712 (Version 1)
Quarter: 2014Q1

REPORT INFORMATION
  Report Type: Spontaneous
  Country: US (occurrence: None)
  Receive Date: 20140204
  Receipt Date: 20140204
  Transmission Date: 20141002
  Serious: Yes (Hospitalization)
  Sender: FDA-Public Use
  Company Number: None

PATIENT
  Sex: Female

DRUGS (1)
  1. SPRYCEL [Suspect]
     Indication: NEOPLASM MALIGNANT
     Route: 048
     Dates: start: 20140108, end: 20140130

REACTIONS (1)
  - Pulmonary oedema [None]
